FAERS Safety Report 8095950-1 (Version None)
Quarter: 2012Q1

REPORT INFORMATION
  Report Type: 
  Country: None (occurrence: None)
  Receive Date: 20120129
  Receipt Date: 20111215
  Transmission Date: 20120608
  Serious: No
  Sender: FDA-Public Use
  Company Number: US-ABBOTT-11P-163-0883626-00

PATIENT
  Age: 57 Year
  Sex: Male

DRUGS (11)
  1. HUMIRA [Suspect]
     Dates: start: 20110901
  2. HUMIRA [Suspect]
     Indication: PSORIATIC ARTHROPATHY
  3. FOLIC ACID [Concomitant]
     Indication: PRODUCT USED FOR UNKNOWN INDICATION
     Dosage: DAILY
  4. OXYCONTIN [Concomitant]
     Indication: ARTHRALGIA
  5. PREDNISONE TAB [Concomitant]
     Indication: PRODUCT USED FOR UNKNOWN INDICATION
  6. XANAX [Concomitant]
     Indication: ANXIETY
     Dosage: 1-2 TABLETS
  7. OXYCODONE HCL [Concomitant]
     Indication: ARTHRALGIA
  8. OMEPRAZOLE [Concomitant]
     Indication: PRODUCT USED FOR UNKNOWN INDICATION
     Dosage: DAILY
  9. TRAZODONE HCL [Concomitant]
     Indication: INSOMNIA
     Dosage: AT BEDTIME
  10. SIMVASTATIN [Concomitant]
     Indication: BLOOD CHOLESTEROL INCREASED
  11. BENICAR [Concomitant]
     Indication: HYPERTENSION

REACTIONS (6)
  - SKIN DISORDER [None]
  - SKIN LESION [None]
  - INJECTION SITE PAIN [None]
  - SKIN HYPERTROPHY [None]
  - CONDITION AGGRAVATED [None]
  - SKIN EXFOLIATION [None]
